FAERS Safety Report 9719980 (Version 2)
Quarter: 2013Q4

REPORT INFORMATION
  Report Type: Spontaneous
  Country: US (occurrence: US)
  Receive Date: 20131128
  Receipt Date: 20131129
  Transmission Date: 20140711
  Serious: Yes (Other)
  Sender: FDA-Public Use
  Company Number: US-RB-060059-13

PATIENT
  Age: 37 Year
  Sex: Male
  Weight: 153 kg

DRUGS (4)
  1. MUCINEX FAST MAX NIGHT TIME COLD + FLU LIQUID [Suspect]
     Indication: NASOPHARYNGITIS
     Dosage: 1-2 TEASPOONS 1-2 TIMES PER DAY
     Route: 048
     Dates: start: 20131109
  2. MUCINEX FAST MAX NIGHT TIME COLD + FLU LIQUID [Suspect]
  3. MUCINEX FAST MAX NIGHT TIME COLD + FLU LIQUID [Suspect]
  4. MUCINEX FAST MAX CAPLET SEVERE CONGESTION UNSPECIFIED [Suspect]
     Indication: NASOPHARYNGITIS
     Dosage: 2-4 TABLETS A DAY
     Route: 048
     Dates: start: 20131109

REACTIONS (12)
  - Confusional state [Recovered/Resolved]
  - Muscle spasms [Recovered/Resolved]
  - Anxiety [Recovered/Resolved]
  - Nervousness [Recovered/Resolved]
  - Chest pain [Recovered/Resolved]
  - Dyspnoea [Recovered/Resolved]
  - Chest discomfort [Recovered/Resolved]
  - Myalgia [Recovered/Resolved]
  - Muscle spasms [Recovered/Resolved]
  - Pain in extremity [Recovered/Resolved]
  - Anxiety [Recovered/Resolved]
  - Dizziness [Recovered/Resolved]
